FAERS Safety Report 15506466 (Version 1)
Quarter: 2018Q4

REPORT INFORMATION
  Report Type: Spontaneous
  Country: US (occurrence: US)
  Receive Date: 20181016
  Receipt Date: 20181016
  Transmission Date: 20190205
  Serious: Yes (Life-Threatening, Hospitalization)
  Sender: FDA-Public Use
  Company Number: US-ASTRAZENECA-2018SF30713

PATIENT
  Age: 2 Year
  Sex: Female

DRUGS (21)
  1. CEFTRIAXONE. [Suspect]
     Active Substance: CEFTRIAXONE
  2. ANAKINRA [Concomitant]
     Active Substance: ANAKINRA
     Indication: CENTRAL NERVOUS SYSTEM INFLAMMATION
     Dosage: HIGH DOSE
  3. PHENYTOIN. [Suspect]
     Active Substance: PHENYTOIN
  4. PROPOFOL. [Concomitant]
     Active Substance: PROPOFOL
     Route: 042
  5. CLONAZEPAM. [Concomitant]
     Active Substance: CLONAZEPAM
     Indication: SEIZURE
  6. PRECEDEX [Concomitant]
     Active Substance: DEXMEDETOMIDINE HYDROCHLORIDE
     Indication: SEIZURE
  7. LACOSAMIDE. [Suspect]
     Active Substance: LACOSAMIDE
     Indication: SEIZURE
  8. FELBAMATE. [Concomitant]
     Active Substance: FELBAMATE
     Indication: SEIZURE
  9. OMEPRAZOLE. [Suspect]
     Active Substance: OMEPRAZOLE
     Route: 048
  10. CEFOTAXIME [Suspect]
     Active Substance: CEFOTAXIME SODIUM
  11. FOSPHENYTOIN [Concomitant]
     Active Substance: FOSPHENYTOIN
     Indication: SEIZURE
  12. TOPIRAMATE. [Concomitant]
     Active Substance: TOPIRAMATE
     Indication: SEIZURE
  13. LEVETIRACETAM. [Concomitant]
     Active Substance: LEVETIRACETAM
     Indication: SEIZURE
  14. MIDAZOLAM [Concomitant]
     Active Substance: MIDAZOLAM HYDROCHLORIDE
     Indication: SEIZURE
  15. FENTANYL. [Concomitant]
     Active Substance: FENTANYL
     Indication: SEIZURE
  16. METHYLPREDNISOLONE. [Concomitant]
     Active Substance: METHYLPREDNISOLONE
     Indication: CENTRAL NERVOUS SYSTEM INFLAMMATION
     Dosage: HIGH DOSE
  17. VANCOMYCIN [Suspect]
     Active Substance: VANCOMYCIN
  18. ACETAMINOPHEN. [Suspect]
     Active Substance: ACETAMINOPHEN
  19. LORAZEPAM. [Concomitant]
     Active Substance: LORAZEPAM
     Indication: SEIZURE
  20. AMPICILLIN [Suspect]
     Active Substance: AMPICILLIN
  21. PHENOBARBITAL. [Suspect]
     Active Substance: PHENOBARBITAL
     Indication: SEIZURE

REACTIONS (1)
  - Drug reaction with eosinophilia and systemic symptoms [Recovered/Resolved]
